FAERS Safety Report 12143930 (Version 3)
Quarter: 2016Q3

REPORT INFORMATION
  Report Type: Spontaneous
  Country: US (occurrence: US)
  Receive Date: 20160304
  Receipt Date: 20160715
  Transmission Date: 20161109
  Serious: No
  Sender: FDA-Public Use
  Company Number: US-JNJFOC-20160201365

PATIENT
  Age: 63 Year
  Sex: Female
  Weight: 46.72 kg

DRUGS (5)
  1. WOMENS ROGAINE [Suspect]
     Active Substance: MINOXIDIL
     Indication: ALOPECIA
     Dosage: 1 ML DROPPERFUL
     Route: 061
     Dates: end: 20160126
  2. ANTIHYPERTENSIVES [Concomitant]
     Active Substance: UNSPECIFIED INGREDIENT
     Indication: HYPERTENSION
     Route: 065
  3. WOMENS ROGAINE [Suspect]
     Active Substance: MINOXIDIL
     Route: 061
  4. ALL OTHER THERAPEUTIC PRODUCTS [Concomitant]
     Active Substance: UNSPECIFIED INGREDIENT
     Indication: BLOOD CHOLESTEROL INCREASED
     Route: 065
  5. METFORMIN [Concomitant]
     Active Substance: METFORMIN HYDROCHLORIDE
     Indication: DIABETES MELLITUS
     Route: 065

REACTIONS (5)
  - Eye swelling [Recovering/Resolving]
  - Hair disorder [Recovering/Resolving]
  - Burning sensation [Recovering/Resolving]
  - Rash [Unknown]
  - Swelling face [Recovering/Resolving]

NARRATIVE: CASE EVENT DATE: 20160126
